FAERS Safety Report 7730554-9 (Version None)
Quarter: 2011Q3

REPORT INFORMATION
  Report Type: 
  Country: None (occurrence: None)
  Receive Date: 20110906
  Receipt Date: 20110825
  Transmission Date: 20111222
  Serious: Yes (Hospitalization)
  Sender: FDA-Public Use
  Company Number: DE-UCBSA-040219

PATIENT
  Sex: Female
  Weight: 56 kg

DRUGS (5)
  1. LEVOTHYROXINE SODIUM [Concomitant]
     Indication: HYPOTHYROIDISM
     Dosage: IN MORNING
     Route: 048
  2. FOLIC ACID [Concomitant]
     Indication: VITAMIN SUPPLEMENTATION
     Route: 048
     Dates: start: 20110110
  3. LAMOTRIGINE [Concomitant]
     Indication: EPILEPSY
     Dosage: MORNINGS AND EVENINGS
     Route: 048
     Dates: start: 20060101
  4. CONTRACEPTIVE [Concomitant]
     Indication: CONTRACEPTION
     Dosage: 1 TABLET ONCE A DAY
     Route: 048
  5. VIMPAT [Suspect]
     Indication: EPILEPSY
     Route: 048
     Dates: start: 20101126, end: 20110123

REACTIONS (2)
  - CONVULSION [None]
  - MOOD SWINGS [None]
